FAERS Safety Report 17994136 (Version 1)
Quarter: 2020Q3

REPORT INFORMATION
  Report Type: Spontaneous
  Country: US (occurrence: US)
  Receive Date: 20200708
  Receipt Date: 20200708
  Transmission Date: 20201103
  Serious: No
  Sender: FDA-Public Use
  Company Number: US-AMGEN-USASP2020106006

PATIENT
  Age: 72 Year
  Sex: Female

DRUGS (2)
  1. PENICILLIN [BENZYLPENICILLIN] [Concomitant]
     Active Substance: PENICILLIN G
     Dosage: UNK
  2. PROLIA [Suspect]
     Active Substance: DENOSUMAB
     Indication: OSTEOPOROSIS
     Dosage: UNK UNK, Q6MO
     Route: 065

REACTIONS (3)
  - Burning sensation [Unknown]
  - Rash pruritic [Not Recovered/Not Resolved]
  - Swelling face [Unknown]

NARRATIVE: CASE EVENT DATE: 202006
